FAERS Safety Report 8321928-6 (Version None)
Quarter: 2012Q2

REPORT INFORMATION
  Report Type: 
  Country: None (occurrence: None)
  Receive Date: 20120430
  Receipt Date: 20120425
  Transmission Date: 20120825
  Serious: Yes (Death)
  Sender: FDA-Public Use
  Company Number: FR-SANOFI-AVENTIS-2012SA028918

PATIENT
  Age: 69 Year
  Sex: Female

DRUGS (8)
  1. TAXOTERE [Suspect]
     Route: 042
     Dates: start: 20120321, end: 20120321
  2. TENORMIN [Concomitant]
     Indication: ATRIAL FLUTTER
     Dates: start: 20120320, end: 20120321
  3. PREDNISONE TAB [Concomitant]
     Dates: start: 20120321, end: 20120321
  4. SPIRONOLACTONE [Concomitant]
     Dates: end: 20120322
  5. ASPIRIN [Concomitant]
     Indication: PROPHYLAXIS
  6. CISPLATIN [Suspect]
     Route: 042
     Dates: start: 20120321, end: 20120321
  7. FLUOROURACIL [Suspect]
     Route: 042
     Dates: start: 20120321, end: 20120323
  8. PREVISCAN [Concomitant]
     Indication: ATRIAL FLUTTER
     Dates: start: 20120301, end: 20120324

REACTIONS (1)
  - RENAL FAILURE ACUTE [None]
